FAERS Safety Report 6758832-0 (Version None)
Quarter: 2010Q2

REPORT INFORMATION
  Report Type: 
  Country: None (occurrence: None)
  Receive Date: 20100607
  Receipt Date: 20100528
  Transmission Date: 20101027
  Serious: Yes (Life-Threatening)
  Sender: FDA-Public Use
  Company Number: GXKR2010GB06015

PATIENT
  Age: 90 Year
  Sex: Female

DRUGS (4)
  1. ALENDRONIC ACID (NGX) [Suspect]
     Dosage: 70 MG, QW
     Route: 048
     Dates: end: 20100517
  2. ACETYLSALICYLIC ACID SRT [Suspect]
     Dosage: 75 MG, QD
     Route: 048
     Dates: end: 20100517
  3. AMLODIPINE [Concomitant]
     Indication: HYPERTENSION
     Dosage: 5 MG, QD
     Route: 048
  4. AMOXICILLIN [Concomitant]
     Indication: INFECTION
     Dosage: 250 MG, TID
     Route: 048
     Dates: start: 20100517

REACTIONS (2)
  - HAEMOGLOBIN DECREASED [None]
  - OESOPHAGITIS [None]
